FAERS Safety Report 5047289-6 (Version None)
Quarter: 2006Q3

REPORT INFORMATION
  Report Type: 
  Country: None (occurrence: None)
  Receive Date: 20060703
  Receipt Date: 20060621
  Transmission Date: 20061208
  Serious: Yes (Death, Hospitalization, Disabling)
  Sender: FDA-Public Use
  Company Number: 2005-01081

PATIENT
  Age: 72 Year
  Sex: Male
  Weight: 57 kg

DRUGS (8)
  1. VELCADE [Suspect]
     Indication: MULTIPLE MYELOMA
     Dosage: 2.00 MG, 2/WEEK, INTRAVENOUS
     Route: 042
     Dates: start: 20041221, end: 20050415
  2. MELPHALAN (MELPHALAN) VIAL [Suspect]
     Indication: MULTIPLE MYELOMA
     Dosage: 14.00 MG
     Dates: start: 20050405, end: 20050408
  3. PREDNISONE (PREDNISONE) VIAL [Suspect]
     Indication: MULTIPLE MYELOMA
     Dosage: 90.00 MG
     Dates: start: 20050405, end: 20050408
  4. FENTANYL TRANSDERMAL SYSTEM [Concomitant]
  5. OMEPRAZOLE [Concomitant]
  6. LEVOFLOXACIN [Concomitant]
  7. PRETERAX (INDAPAMIDE, PERINDOPRIL ERBUMINE) [Concomitant]
  8. VORICONAZOLE [Concomitant]

REACTIONS (53)
  - ABDOMINAL DISTENSION [None]
  - AGITATION [None]
  - ASTHENIA [None]
  - BACTERIA URINE IDENTIFIED [None]
  - BLOOD BICARBONATE INCREASED [None]
  - BLOOD CALCIUM DECREASED [None]
  - BLOOD GLUCOSE INCREASED [None]
  - BLOOD PH INCREASED [None]
  - BLOOD PHOSPHORUS DECREASED [None]
  - BLOOD POTASSIUM INCREASED [None]
  - BLOOD UREA INCREASED [None]
  - BREATH SOUNDS ABNORMAL [None]
  - BRONCHIAL DISORDER [None]
  - CANDIDIASIS [None]
  - CHEST X-RAY ABNORMAL [None]
  - CONSTIPATION [None]
  - CONTUSION [None]
  - CREPITATIONS [None]
  - DEHYDRATION [None]
  - DEMYELINATING POLYNEUROPATHY [None]
  - DIARRHOEA [None]
  - DISORIENTATION [None]
  - DYSPNOEA [None]
  - DYSPNOEA AT REST [None]
  - ESCHERICHIA INFECTION [None]
  - FLATULENCE [None]
  - FOOD INTOLERANCE [None]
  - GASTROINTESTINAL HYPOMOTILITY [None]
  - GENERAL PHYSICAL CONDITION ABNORMAL [None]
  - GENERAL PHYSICAL HEALTH DETERIORATION [None]
  - HAEMOGLOBIN DECREASED [None]
  - HEART SOUNDS ABNORMAL [None]
  - HYPOREFLEXIA [None]
  - INTERSTITIAL LUNG DISEASE [None]
  - LEUKOCYTURIA [None]
  - LUNG DISORDER [None]
  - MUCOUS STOOLS [None]
  - MUSCLE ATROPHY [None]
  - MUSCULAR WEAKNESS [None]
  - NERVOUS SYSTEM DISORDER [None]
  - NEUROPATHY [None]
  - NEUROPATHY PERIPHERAL [None]
  - OXYGEN SATURATION DECREASED [None]
  - PCO2 DECREASED [None]
  - PO2 DECREASED [None]
  - POLYNEUROPATHY [None]
  - PYREXIA [None]
  - RALES [None]
  - RESPIRATORY TRACT INFECTION [None]
  - SOMNOLENCE [None]
  - SUPERINFECTION LUNG [None]
  - URINARY TRACT INFECTION [None]
  - VOMITING [None]
